FAERS Safety Report 9231312 (Version 2)
Quarter: 2013Q2

REPORT INFORMATION
  Report Type: Report from Study
  Country: IL (occurrence: IL)
  Receive Date: 20130415
  Receipt Date: 20130415
  Transmission Date: 20140414
  Serious: Yes (Hospitalization, Other)
  Sender: FDA-Public Use
  Company Number: IL-ROXANE LABORATORIES, INC.-2008-DE-07784GD

PATIENT
  Age: 67 Year
  Sex: Male

DRUGS (17)
  1. MORPHINE [Suspect]
     Indication: HYPERAESTHESIA
     Dosage: 15 MG
  2. MORPHINE [Suspect]
     Dosage: 30 MG
  3. MORPHINE [Suspect]
     Route: 042
  4. MORPHINE [Suspect]
     Route: 042
  5. MEPERIDINE HCL [Suspect]
     Indication: PAIN
     Dosage: 100 MG
  6. METHOTREXATE [Suspect]
     Indication: RHEUMATOID ARTHRITIS
     Dosage: 2.5 MG
     Route: 030
  7. METHYLPREDNISOLONE [Suspect]
     Indication: RHEUMATOID ARTHRITIS
     Dosage: 10 MG
     Route: 048
  8. ROFECOXIB [Suspect]
     Indication: HYPERAESTHESIA
     Dosage: 25 MG
  9. OXYCODONE [Suspect]
     Indication: HYPERAESTHESIA
     Dosage: 20 MG
  10. OXYCODONE [Suspect]
     Dosage: 80 MG
  11. OXYCODONE [Suspect]
     Dosage: 40 MG
  12. OXYCODONE [Suspect]
     Dosage: 20 MG
  13. VANCOMYCIN [Suspect]
     Indication: ABSCESS
     Dosage: 1 G
  14. CEFEPIME [Suspect]
     Indication: ABSCESS
     Dosage: 4 G
  15. PROMETHAZINE [Suspect]
     Indication: ANALGESIC THERAPY
     Dosage: 25 MG
  16. CHLORPROMAZINE [Suspect]
     Indication: ANALGESIC THERAPY
     Dosage: 37.5 MG
     Route: 030
  17. KETAMINE [Suspect]
     Indication: PAIN
     Route: 042

REACTIONS (5)
  - Drug ineffective [Unknown]
  - Abscess [Unknown]
  - Somnolence [Unknown]
  - Hyperaesthesia [Unknown]
  - Allodynia [Unknown]
